FAERS Safety Report 7374671-4 (Version None)
Quarter: 2011Q1

REPORT INFORMATION
  Report Type: 
  Country: None (occurrence: None)
  Receive Date: 20110325
  Receipt Date: 20100809
  Transmission Date: 20110831
  Serious: No
  Sender: FDA-Public Use
  Company Number: US-MYLANLABS-2010S1012369

PATIENT
  Age: 71 Year
  Sex: Female

DRUGS (10)
  1. FENTANYL-100 [Suspect]
     Indication: ARTHRALGIA
     Dosage: CHANGED PATCHES Q3D
     Route: 062
     Dates: start: 20100606, end: 20100706
  2. FENTANYL-100 [Suspect]
     Indication: PAIN IN EXTREMITY
     Dosage: CHANGED PATCHES Q3D
     Route: 062
     Dates: start: 20100606, end: 20100706
  3. ALDACTONE [Concomitant]
  4. SIMVASTATIN [Concomitant]
  5. FENTANYL-100 [Suspect]
     Indication: SKIN ULCER
     Dosage: CHANGED PATCHES Q3D
     Route: 062
     Dates: start: 20100606, end: 20100706
  6. CAPTOPRIL [Concomitant]
  7. DIGOXIN [Concomitant]
  8. FUROSEMIDE [Concomitant]
  9. COREG [Concomitant]
  10. ASPIRIN [Concomitant]

REACTIONS (3)
  - FEELING ABNORMAL [None]
  - DRUG WITHDRAWAL SYNDROME [None]
  - FEELING JITTERY [None]
